FAERS Safety Report 10676212 (Version 2)
Quarter: 2015Q1

REPORT INFORMATION
  Report Type: Spontaneous
  Country: US (occurrence: US)
  Receive Date: 20141226
  Receipt Date: 20150105
  Transmission Date: 20150720
  Serious: No
  Sender: FDA-Public Use
  Company Number: US-BIOGENIDEC-2014BI136370

PATIENT
  Age: 52 Year
  Sex: Female

DRUGS (2)
  1. TECFIDERA [Suspect]
     Active Substance: DIMETHYL FUMARATE
     Indication: PRODUCT USED FOR UNKNOWN INDICATION
  2. AMPYRA [Concomitant]
     Active Substance: DALFAMPRIDINE
     Indication: MULTIPLE SCLEROSIS
     Route: 048
     Dates: start: 201411

REACTIONS (3)
  - Nausea [Recovered/Resolved]
  - Headache [Recovered/Resolved]
  - Dizziness [Unknown]
